FAERS Safety Report 6052934-2 (Version None)
Quarter: 2009Q1

REPORT INFORMATION
  Report Type: 
  Country: None (occurrence: None)
  Receive Date: 20090127
  Receipt Date: 20090112
  Transmission Date: 20090719
  Serious: Yes (Hospitalization)
  Sender: FDA-Public Use
  Company Number: BR-NOVOPROD-283125

PATIENT
  Age: 74 Year
  Sex: Female

DRUGS (7)
  1. NOVOLIN N [Suspect]
     Indication: INSULIN-REQUIRING TYPE 2 DIABETES MELLITUS
     Dosage: 22-28 IU, QD
     Dates: start: 20080501, end: 20080925
  2. SALICYLIC ACID [Concomitant]
     Dosage: 1 TAB, UNK
     Route: 048
  3. ATENOLOL [Concomitant]
     Dosage: 1 TAB, UNK
     Route: 048
  4. SINVASTATINA [Concomitant]
     Dosage: 1 TAB, UNK
     Route: 048
  5. RISPERIDONE [Concomitant]
     Dosage: .5 TAB, UNK
     Route: 048
  6. GLICAZIDA [Concomitant]
     Dosage: 1 TAB, UNK
     Route: 048
  7. METFORMIN HCL [Concomitant]
     Dosage: 2 TAB, UNK
     Route: 048

REACTIONS (2)
  - CEREBROVASCULAR ACCIDENT [None]
  - DEVICE FAILURE [None]
